FAERS Safety Report 13554042 (Version 1)
Quarter: 2017Q2

REPORT INFORMATION
  Report Type: Spontaneous
  Country: US (occurrence: US)
  Receive Date: 20170517
  Receipt Date: 20170517
  Transmission Date: 20170830
  Serious: Yes (Disabling, Other)
  Sender: FDA-Public Use
  Company Number: US-SA-2017SA089281

PATIENT
  Age: 57 Year
  Sex: Female

DRUGS (4)
  1. ALIROCUMAB PREFILLED PEN [Concomitant]
     Active Substance: ALIROCUMAB
     Indication: BLOOD CHOLESTEROL
  2. PRALUENT [Suspect]
     Active Substance: ALIROCUMAB
     Indication: BLOOD CHOLESTEROL
     Route: 058
     Dates: start: 2017
  3. ALIROCUMAB PREFILLED PEN [Concomitant]
     Active Substance: ALIROCUMAB
     Indication: BLOOD CHOLESTEROL
     Dates: start: 2017
  4. PRALUENT [Suspect]
     Active Substance: ALIROCUMAB
     Indication: BLOOD CHOLESTEROL
     Route: 058

REACTIONS (2)
  - Cerebrovascular accident [Not Recovered/Not Resolved]
  - Wheelchair user [Not Recovered/Not Resolved]

NARRATIVE: CASE EVENT DATE: 201608
